FAERS Safety Report 6240641-2 (Version None)
Quarter: 2009Q2

REPORT INFORMATION
  Report Type: 
  Country: None (occurrence: None)
  Receive Date: 20090623
  Receipt Date: 20081121
  Transmission Date: 20091009
  Serious: No
  Sender: FDA-Public Use
  Company Number: US-ASTRAZENECA-2008UW26116

PATIENT
  Age: 70 Year
  Sex: Female

DRUGS (13)
  1. PULMICORT-100 [Suspect]
     Route: 055
     Dates: start: 20080908, end: 20080901
  2. PULMICORT-100 [Suspect]
     Route: 055
     Dates: start: 20080918
  3. BROVANA [Suspect]
     Indication: DYSPNOEA
     Dosage: 15 UG/2ML
     Dates: start: 20080908, end: 20080901
  4. BROVANA [Suspect]
     Dosage: 15 UG/2ML
     Dates: start: 20080918
  5. ALBUTEROL [Suspect]
     Dates: start: 20080908, end: 20080901
  6. ALBUTEROL [Suspect]
     Dates: start: 20080918
  7. PEPCID [Concomitant]
  8. XANAX [Concomitant]
  9. FOLIC ACID [Concomitant]
  10. VITAMIN B-12 [Concomitant]
  11. VICODIN [Concomitant]
  12. HYDROMET [Concomitant]
  13. CHEMOTHERAPEUTICS [Concomitant]

REACTIONS (2)
  - LARYNGITIS [None]
  - WRONG TECHNIQUE IN DRUG USAGE PROCESS [None]
